FAERS Safety Report 24199457 (Version 1)
Quarter: 2024Q3

REPORT INFORMATION
  Report Type: Spontaneous
  Country: DO (occurrence: DO)
  Receive Date: 20240812
  Receipt Date: 20240812
  Transmission Date: 20241017
  Serious: Yes (Death, Other)
  Sender: ASTELLAS
  Company Number: DO-PFIZER INC-PV202400102595

PATIENT
  Age: 83 Year
  Sex: Female

DRUGS (1)
  1. PADCEV [Suspect]
     Active Substance: ENFORTUMAB VEDOTIN-EJFV
     Indication: Transitional cell carcinoma
     Dosage: 1.25 MG/KG, IV INFUSION OVER 30 MINUTES
     Route: 041
     Dates: start: 20240514, end: 20240710

REACTIONS (4)
  - Death [Fatal]
  - Hyperglycaemia [Unknown]
  - Alopecia [Unknown]
  - Rash [Unknown]

NARRATIVE: CASE EVENT DATE: 20240101
